FAERS Safety Report 8021878-9 (Version None)
Quarter: 2012Q1

REPORT INFORMATION
  Report Type: 
  Country: None (occurrence: None)
  Receive Date: 20120104
  Receipt Date: 20111227
  Transmission Date: 20120608
  Serious: Yes (Hospitalization)
  Sender: FDA-Public Use
  Company Number: TW-SANOFI-AVENTIS-2011SA081566

PATIENT
  Age: 53 Year
  Sex: Male

DRUGS (6)
  1. ISONIAZID [Concomitant]
     Route: 048
  2. ETHAMBUTOL HYDROCHLORIDE [Concomitant]
     Indication: PULMONARY TUBERCULOSIS
     Route: 048
  3. RIFAMPICIN [Suspect]
     Route: 048
  4. ISONIAZID [Concomitant]
     Indication: PULMONARY TUBERCULOSIS
     Route: 048
  5. RIFAMPICIN [Suspect]
     Indication: PULMONARY TUBERCULOSIS
     Route: 048
  6. PYRAZINAMIDE [Concomitant]
     Indication: PULMONARY TUBERCULOSIS
     Route: 048

REACTIONS (8)
  - SKIN LESION [None]
  - PALPABLE PURPURA [None]
  - BLOOD CREATININE INCREASED [None]
  - HENOCH-SCHONLEIN PURPURA [None]
  - HAEMATOCHEZIA [None]
  - RENAL IMPAIRMENT [None]
  - BLOOD UREA INCREASED [None]
  - GASTROINTESTINAL HAEMORRHAGE [None]
